FAERS Safety Report 20903613 (Version 2)
Quarter: 2022Q2

REPORT INFORMATION
  Report Type: Spontaneous
  Country: FR (occurrence: FR)
  Receive Date: 20220602
  Receipt Date: 20220611
  Transmission Date: 20220721
  Serious: Yes (Hospitalization)
  Sender: FDA-Public Use
  Company Number: None

PATIENT
  Age: 70 Year
  Sex: Female

DRUGS (2)
  1. DIAZEPAM [Suspect]
     Active Substance: DIAZEPAM
     Indication: Intentional overdose
     Dosage: NP,THERAPY DURATION : 1 DAYS
     Route: 048
     Dates: start: 20210617, end: 20210617
  2. AMLODIPINE [Suspect]
     Active Substance: AMLODIPINE BESYLATE
     Indication: Intentional overdose
     Dosage: NP, THERAPY DURATION : 1 DAYS
     Route: 048
     Dates: start: 20210617, end: 20210617

REACTIONS (5)
  - Hypotension [Recovered/Resolved]
  - Bradypnoea [Recovered/Resolved]
  - Oxygen saturation decreased [Recovered/Resolved]
  - Somnolence [Recovered/Resolved]
  - Poisoning deliberate [Recovered/Resolved]

NARRATIVE: CASE EVENT DATE: 20210617
